FAERS Safety Report 11624588 (Version 1)
Quarter: 2015Q4

REPORT INFORMATION
  Report Type: Report from Study
  Country: BE (occurrence: BE)
  Receive Date: 20151013
  Receipt Date: 20151013
  Transmission Date: 20160304
  Serious: Yes (Other)
  Sender: FDA-Public Use
  Company Number: BE-ABBVIE-15K-013-1465213-00

PATIENT
  Sex: Male

DRUGS (1)
  1. HUMIRA [Suspect]
     Active Substance: ADALIMUMAB
     Indication: RHEUMATOID ARTHRITIS
     Route: 065
     Dates: end: 20150723

REACTIONS (7)
  - Weight decreased [Unknown]
  - Diverticulum intestinal [Unknown]
  - Skin mass [Unknown]
  - Adenoma benign [Unknown]
  - Lymphadenopathy [Unknown]
  - Computerised tomogram thorax abnormal [Unknown]
  - Nodule [Unknown]
